FAERS Safety Report 17350841 (Version 1)
Quarter: 2020Q1

REPORT INFORMATION
  Report Type: Spontaneous
  Country: NL (occurrence: FR)
  Receive Date: 20200130
  Receipt Date: 20200130
  Transmission Date: 20200409
  Serious: Yes (Hospitalization)
  Sender: FDA-Public Use
  Company Number: FR-FRESENIUS KABI-FK202000942

PATIENT
  Age: 51 Year
  Sex: Female
  Weight: 45 kg

DRUGS (5)
  1. LIDOCAINE (MANUFACTURER UNKNOWN) [Suspect]
     Active Substance: LIDOCAINE
     Indication: GENERAL ANAESTHESIA
     Route: 042
     Dates: start: 20191204, end: 20191204
  2. SUFENTANIL [Suspect]
     Active Substance: SUFENTANIL
     Indication: GENERAL ANAESTHESIA
     Route: 042
     Dates: start: 20191204, end: 20191204
  3. KETAMINE [Suspect]
     Active Substance: KETAMINE
     Indication: GENERAL ANAESTHESIA
     Route: 042
     Dates: start: 20191204, end: 20191204
  4. ATRACURIUM BESILATE [Suspect]
     Active Substance: ATRACURIUM BESYLATE
     Indication: GENERAL ANAESTHESIA
     Route: 042
     Dates: start: 20191204, end: 20191204
  5. PROPOFOL (MANUFACTURER UNKNOWN) [Suspect]
     Active Substance: PROPOFOL
     Indication: GENERAL ANAESTHESIA
     Route: 042
     Dates: start: 20191204, end: 20191204

REACTIONS (1)
  - Anaphylactic shock [Recovering/Resolving]

NARRATIVE: CASE EVENT DATE: 20191204
